FAERS Safety Report 22540825 (Version 1)
Quarter: 2023Q2

REPORT INFORMATION
  Report Type: Report from Study
  Country: US (occurrence: US)
  Receive Date: 20230609
  Receipt Date: 20230609
  Transmission Date: 20230721
  Serious: Yes (Death)
  Sender: FDA-Public Use
  Company Number: US-002147023-NVSC2023US132188

PATIENT
  Age: 62 Year
  Sex: Male

DRUGS (1)
  1. LUTATHERA [Suspect]
     Active Substance: LUTETIUM OXODOTREOTIDE LU-177
     Indication: Carcinoid tumour in the large intestine
     Dosage: UNK (FORMULATION LIQUID)
     Route: 042
     Dates: start: 20220715

REACTIONS (1)
  - Death [Fatal]

NARRATIVE: CASE EVENT DATE: 20220915
